FAERS Safety Report 19294325 (Version 1)
Quarter: 2021Q2

REPORT INFORMATION
  Report Type: Spontaneous
  Country: US (occurrence: US)
  Receive Date: 20210524
  Receipt Date: 20210524
  Transmission Date: 20210717
  Serious: Yes (Disabling)
  Sender: FDA-Public Use
  Company Number: None

PATIENT
  Age: 57 Year
  Sex: Female
  Weight: 101.25 kg

DRUGS (15)
  1. ASMANEX [Concomitant]
     Active Substance: MOMETASONE FUROATE
  2. CPAP [Concomitant]
     Active Substance: DEVICE
  3. VITAMIN B COMPLEX [Concomitant]
     Active Substance: CYANOCOBALAMIN\DEXPANTHENOL\NIACINAMIDE\PYRIDOXINE HYDROCHLORIDE\RIBOFLAVIN 5^-PHOSPHATE SODIUM\THIAMINE HYDROCHLORIDE\VITAMIN B COMPLEX
  4. COENZYME Q10 [Concomitant]
     Active Substance: DIETARY SUPPLEMENT\UBIDECARENONE
  5. MONTELUKAST [Concomitant]
     Active Substance: MONTELUKAST SODIUM
  6. OMEGA [Concomitant]
  7. MAGNESIUM [Concomitant]
     Active Substance: MAGNESIUM
  8. ESCITALOPRAM OXALATE 5MG [Suspect]
     Active Substance: ESCITALOPRAM OXALATE
     Indication: HEAD INJURY
     Dosage: ?          QUANTITY:1 TABLET(S);?
     Route: 048
     Dates: start: 20170601, end: 20210321
  9. FLUTICASONE. [Concomitant]
     Active Substance: FLUTICASONE
  10. PANTOPRAZOLE NA [Concomitant]
     Active Substance: PANTOPRAZOLE SODIUM
  11. ESCITALOPRAM OXALATE 5MG [Suspect]
     Active Substance: ESCITALOPRAM OXALATE
     Indication: ANGER
     Dosage: ?          QUANTITY:1 TABLET(S);?
     Route: 048
     Dates: start: 20170601, end: 20210321
  12. CALCIUM [Concomitant]
     Active Substance: CALCIUM
  13. TUMERIC [Concomitant]
     Active Substance: HERBALS\TURMERIC
  14. VITAMIN D [Concomitant]
     Active Substance: VITAMIN D NOS
  15. CITALOPRAM [Suspect]
     Active Substance: CITALOPRAM HYDROBROMIDE

REACTIONS (4)
  - Cough [None]
  - Multiple allergies [None]
  - Wheezing [None]
  - Dyspnoea [None]

NARRATIVE: CASE EVENT DATE: 20170601
